FAERS Safety Report 17292547 (Version 1)
Quarter: 2020Q1

REPORT INFORMATION
  Report Type: Spontaneous
  Country: US (occurrence: US)
  Receive Date: 20200121
  Receipt Date: 20200121
  Transmission Date: 20200409
  Serious: Yes (Other)
  Sender: FDA-Public Use
  Company Number: US-BAYER-2019-238161

PATIENT
  Age: 65 Year
  Sex: Male

DRUGS (1)
  1. BETASERON [Suspect]
     Active Substance: INTERFERON BETA-1B
     Indication: MULTIPLE SCLEROSIS
     Dosage: 0.3 MG, QOD

REACTIONS (4)
  - Multiple sclerosis relapse [None]
  - Balance disorder [None]
  - Visual impairment [None]
  - Insomnia [None]

NARRATIVE: CASE EVENT DATE: 201908
